FAERS Safety Report 8112994-1 (Version None)
Quarter: 2012Q1

REPORT INFORMATION
  Report Type: 
  Country: None (occurrence: None)
  Receive Date: 20120203
  Receipt Date: 20120123
  Transmission Date: 20120608
  Serious: Yes (Death, Other)
  Sender: FDA-Public Use
  Company Number: US-ELI_LILLY_AND_COMPANY-US201111002304

PATIENT
  Sex: Female

DRUGS (3)
  1. CALCIUM [Concomitant]
  2. CALCIUM CARBONATE [Concomitant]
  3. FORTEO [Suspect]
     Indication: OSTEOPOROSIS
     Dosage: 20 UG, QD
     Dates: start: 20111007

REACTIONS (9)
  - MUSCULAR WEAKNESS [None]
  - LUNG CANCER METASTATIC [None]
  - DEATH [None]
  - METASTATIC SQUAMOUS CELL CARCINOMA [None]
  - HEPATIC CANCER METASTATIC [None]
  - ABDOMINAL PAIN UPPER [None]
  - BRAIN CANCER METASTATIC [None]
  - PAIN [None]
  - NAUSEA [None]
